FAERS Safety Report 25577421 (Version 2)
Quarter: 2025Q3

REPORT INFORMATION
  Report Type: Report from Study
  Country: US (occurrence: US)
  Receive Date: 20250718
  Receipt Date: 20250721
  Transmission Date: 20251021
  Serious: Yes (Hospitalization)
  Sender: VERTEX
  Company Number: US-VERTEX PHARMACEUTICALS-2025-010188

PATIENT
  Sex: Female

DRUGS (3)
  1. ALYFTREK [Suspect]
     Active Substance: DEUTIVACAFTOR\TEZACAFTOR\VANZACAFTOR
     Indication: Cystic fibrosis
     Dosage: 20MG VANZACAFTOR/ 100 MG TEZACAFTOR/ 250 MG DEUTIVACAFTOR,, QD
     Route: 048
     Dates: start: 202504, end: 2025
  2. COLCHICINE [Concomitant]
     Active Substance: COLCHICINE
  3. COLCHICINE [Concomitant]
     Active Substance: COLCHICINE

REACTIONS (1)
  - Pericarditis [Unknown]

NARRATIVE: CASE EVENT DATE: 20250101
